FAERS Safety Report 4788801-1 (Version None)
Quarter: 2005Q3

REPORT INFORMATION
  Report Type: 
  Country: None (occurrence: None)
  Receive Date: 20050915
  Receipt Date: 20050630
  Transmission Date: 20060218
  Serious: No
  Sender: FDA-Public Use
  Company Number: BDI-007341

PATIENT
  Sex: Female

DRUGS (1)
  1. MULTIHANCE [Suspect]
     Indication: NUCLEAR MAGNETIC RESONANCE IMAGING
     Dosage: 20 ML ONCE IV
     Route: 042
     Dates: start: 20050628, end: 20050628

REACTIONS (6)
  - BURNING SENSATION [None]
  - CHEST DISCOMFORT [None]
  - DYSGEUSIA [None]
  - HYPERHIDROSIS [None]
  - NAUSEA [None]
  - PALPITATIONS [None]
